FAERS Safety Report 26202347 (Version 1)
Quarter: 2025Q4

REPORT INFORMATION
  Report Type: Other
  Country: CN (occurrence: CN)
  Receive Date: 20251226
  Receipt Date: 20251226
  Transmission Date: 20260117
  Serious: Yes (Hospitalization, Other)
  Sender: CHIA TAI TIANQING PHARMACEUTICAL GROUP
  Company Number: None

PATIENT
  Age: 54 Year
  Sex: Female
  Weight: 60.0 kg

DRUGS (2)
  1. ERIBULIN MESYLATE [Suspect]
     Active Substance: ERIBULIN MESYLATE
     Indication: Breast cancer
     Dosage: 2.00 MG, QD, D1, D8
     Route: 042
     Dates: start: 20251204, end: 20251211
  2. ERIBULIN MESYLATE [Suspect]
     Active Substance: ERIBULIN MESYLATE
     Indication: Breast cancer
     Dosage: 2.00 MG, QD, D1, 8
     Dates: start: 20251209, end: 20251210

REACTIONS (1)
  - Myelosuppression [Recovering/Resolving]

NARRATIVE: CASE EVENT DATE: 20251215
